FAERS Safety Report 20431398 (Version 1)
Quarter: 2022Q1

REPORT INFORMATION
  Report Type: Spontaneous
  Country: HR (occurrence: HR)
  Receive Date: 20220204
  Receipt Date: 20220204
  Transmission Date: 20220424
  Serious: Yes (Hospitalization)
  Sender: FDA-Public Use
  Company Number: HR-ELI_LILLY_AND_COMPANY-HR202201009208

PATIENT
  Age: 36 Year
  Sex: Male

DRUGS (1)
  1. OLUMIANT [Suspect]
     Active Substance: BARICITINIB
     Indication: Dermatitis atopic
     Dosage: UNK, UNKNOWN
     Route: 065
     Dates: start: 20220104

REACTIONS (3)
  - Lip disorder [Unknown]
  - Injury corneal [Unknown]
  - Eyelid injury [Unknown]

NARRATIVE: CASE EVENT DATE: 20220123
